FAERS Safety Report 21577981 (Version 1)
Quarter: 2022Q4

REPORT INFORMATION
  Report Type: Report from Study
  Country: ES (occurrence: ES)
  Receive Date: 20221110
  Receipt Date: 20221110
  Transmission Date: 20230113
  Serious: Yes (Other)
  Sender: FDA-Public Use
  Company Number: ES-MYLANLABS-2022M1124270

PATIENT
  Age: 27 Year
  Sex: Male

DRUGS (1)
  1. ADALIMUMAB [Suspect]
     Active Substance: ADALIMUMAB
     Indication: PASH syndrome
     Dosage: UNK
     Route: 065

REACTIONS (2)
  - Hidradenitis [Recovered/Resolved]
  - Paradoxical drug reaction [Recovered/Resolved]
